FAERS Safety Report 25585388 (Version 1)
Quarter: 2025Q3

REPORT INFORMATION
  Report Type: Spontaneous
  Country: US (occurrence: US)
  Receive Date: 20250721
  Receipt Date: 20250721
  Transmission Date: 20251021
  Serious: Yes (Other)
  Sender: TORRENT PHARMA INC.
  Company Number: US-TORRENT-00014431

PATIENT
  Age: 61 Year
  Sex: Female

DRUGS (3)
  1. DICHLORPHENAMIDE [Suspect]
     Active Substance: DICHLORPHENAMIDE
     Indication: Paralysis
     Route: 065
  2. CODEINE [Concomitant]
     Active Substance: CODEINE
     Indication: Migraine
     Route: 065
  3. Forinal [Concomitant]
     Indication: Migraine
     Route: 065

REACTIONS (8)
  - Sciatica [Unknown]
  - Musculoskeletal stiffness [Unknown]
  - Drug ineffective [Unknown]
  - Muscular weakness [Unknown]
  - Paralysis [Unknown]
  - Muscle spasms [Unknown]
  - Muscle tightness [Unknown]
  - Pain [Unknown]
